FAERS Safety Report 14126381 (Version 2)
Quarter: 2017Q4

REPORT INFORMATION
  Report Type: Spontaneous
  Country: US (occurrence: US)
  Receive Date: 20171025
  Receipt Date: 20171226
  Transmission Date: 20180321
  Serious: No
  Sender: FDA-Public Use
  Company Number: US-NEUROCRINE BIOSCIENCES INC.-2017NBI01115

PATIENT
  Sex: Female
  Weight: 54.48 kg

DRUGS (4)
  1. ILEVRO [Suspect]
     Active Substance: NEPAFENAC
     Indication: CATARACT OPERATION
  2. INGREZZA [Suspect]
     Active Substance: VALBENAZINE
     Indication: TARDIVE DYSKINESIA
     Route: 048
     Dates: start: 2017
  3. MOXIFLOXACIN. [Suspect]
     Active Substance: MOXIFLOXACIN
     Indication: CATARACT OPERATION
  4. DUREZOL [Suspect]
     Active Substance: DIFLUPREDNATE
     Indication: CATARACT OPERATION

REACTIONS (4)
  - Depression [Recovered/Resolved]
  - Anxiety [Recovered/Resolved]
  - Dyskinesia [Not Recovered/Not Resolved]
  - Insomnia [Not Recovered/Not Resolved]

NARRATIVE: CASE EVENT DATE: 2017
